FAERS Safety Report 5811604-3 (Version None)
Quarter: 2008Q3

REPORT INFORMATION
  Report Type: 
  Country: None (occurrence: None)
  Receive Date: 20080711
  Receipt Date: 20080711
  Transmission Date: 20090109
  Serious: Yes (Other)
  Sender: FDA-Public Use
  Company Number: None

PATIENT
  Sex: Female
  Weight: 61.6892 kg

DRUGS (1)
  1. RECLAST [Suspect]
     Indication: OSTEOPOROSIS
     Dates: start: 20080506

REACTIONS (7)
  - ABASIA [None]
  - ARTHRALGIA [None]
  - CHILLS [None]
  - CONFUSIONAL STATE [None]
  - FEELING ABNORMAL [None]
  - PAIN [None]
  - SKIN WARM [None]
